FAERS Safety Report 12239749 (Version 6)
Quarter: 2017Q1

REPORT INFORMATION
  Report Type: Spontaneous
  Country: US (occurrence: US)
  Receive Date: 20160405
  Receipt Date: 20170102
  Transmission Date: 20170428
  Serious: Yes (Hospitalization, Other)
  Sender: FDA-Public Use
  Company Number: US-ROCHE-1647731

PATIENT
  Age: 72 Year
  Sex: Female

DRUGS (3)
  1. ERIVEDGE [Suspect]
     Active Substance: VISMODEGIB
     Indication: SKIN CANCER
     Route: 048
     Dates: start: 20150919
  2. ERIVEDGE [Suspect]
     Active Substance: VISMODEGIB
     Route: 048
     Dates: start: 20150916
  3. WARFARIN [Concomitant]
     Active Substance: WARFARIN
     Route: 065

REACTIONS (7)
  - Weight decreased [Unknown]
  - Nausea [Unknown]
  - Dysgeusia [Unknown]
  - Anaemia [Unknown]
  - Pneumonia [Unknown]
  - Alopecia [Unknown]
  - Ageusia [Unknown]

NARRATIVE: CASE EVENT DATE: 20160420
